FAERS Safety Report 10416598 (Version 2)
Quarter: 2014Q3

REPORT INFORMATION
  Report Type: Report from Study
  Country: BR (occurrence: BR)
  Receive Date: 20140828
  Receipt Date: 20140828
  Transmission Date: 20150326
  Serious: Yes (Other)
  Sender: FDA-Public Use
  Company Number: PHHY2014BR102589

PATIENT
  Age: 66 Year
  Sex: Male
  Weight: 110 kg

DRUGS (4)
  1. DIOVAN TRIPLE [Suspect]
     Active Substance: AMLODIPINE BESYLATE\HYDROCHLOROTHIAZIDE\VALSARTAN
     Dosage: 2 DF, ONCE IN THE MORNING
     Route: 048
  2. ASPIRINA [Concomitant]
     Active Substance: ASPIRIN
     Indication: PROPHYLAXIS
     Dosage: UNK UKN, UNK
     Dates: start: 201310
  3. LYCOPENE [Concomitant]
     Active Substance: LYCOPENE
     Indication: PROPHYLAXIS
     Dosage: UNK UKN, UNK
     Dates: start: 201310
  4. DIOVAN TRIPLE [Suspect]
     Active Substance: AMLODIPINE BESYLATE\HYDROCHLOROTHIAZIDE\VALSARTAN
     Indication: HYPERTENSION
     Dosage: 2 DF (160/ 5/ 12.5 MG), QD (ONCE IN THE MORNING)
     Route: 048
     Dates: start: 200910, end: 201402

REACTIONS (4)
  - Benign neoplasm of prostate [Recovered/Resolved]
  - Joint swelling [Recovered/Resolved]
  - Peripheral swelling [Recovered/Resolved]
  - Blood pressure increased [Unknown]
